FAERS Safety Report 6444279-3 (Version None)
Quarter: 2009Q4

REPORT INFORMATION
  Report Type: 
  Country: None (occurrence: None)
  Receive Date: 20091118
  Receipt Date: 20091111
  Transmission Date: 20100525
  Serious: Yes (Death, Other)
  Sender: FDA-Public Use
  Company Number: US-ASTRAZENECA-2009SE26067

PATIENT
  Age: 45 Year
  Sex: Male
  Weight: 81.6 kg

DRUGS (3)
  1. SEROQUEL [Suspect]
     Route: 048
     Dates: end: 20080423
  2. THORAZINE [Concomitant]
     Dates: start: 20030101
  3. ZYPREXA [Concomitant]
     Dates: start: 20020101

REACTIONS (5)
  - BLOOD CHOLESTEROL INCREASED [None]
  - DEATH [None]
  - DIABETES MELLITUS [None]
  - HYPERLIPIDAEMIA [None]
  - PANCREATITIS [None]
